FAERS Safety Report 9657707 (Version 2)
Quarter: 2014Q1

REPORT INFORMATION
  Report Type: Report from Study
  Country: US (occurrence: US)
  Receive Date: 20131030
  Receipt Date: 20140108
  Transmission Date: 20141002
  Serious: Yes (Hospitalization, Other)
  Sender: FDA-Public Use
  Company Number: US-PURDUE-USA-2013-0107809

PATIENT
  Age: 53 Year
  Sex: Female
  Weight: 90.7 kg

DRUGS (2)
  1. OXYCONTIN (NDA 22-272) [Suspect]
     Indication: SPINAL COLUMN STENOSIS
     Dosage: 20 MG, Q12H
     Route: 048
     Dates: start: 19951110
  2. OXYCONTIN (NDA 22-272) [Suspect]
     Indication: PAIN MANAGEMENT

REACTIONS (5)
  - Cellulitis [Unknown]
  - Spinal column stenosis [Unknown]
  - Abasia [Unknown]
  - Erythema [Unknown]
  - Local swelling [Unknown]
